FAERS Safety Report 8418350-0 (Version None)
Quarter: 2012Q2

REPORT INFORMATION
  Report Type: 
  Country: None (occurrence: None)
  Receive Date: 20120607
  Receipt Date: 20120531
  Transmission Date: 20120825
  Serious: Yes (Other)
  Sender: FDA-Public Use
  Company Number: CN-ASTRAZENECA-2012SE36215

PATIENT
  Sex: Male

DRUGS (3)
  1. OMEPRAZOLE MAGNESIUM [Suspect]
     Dosage: 14 CAPSULES/BOX
     Route: 048
  2. OMEPRAZOLE MAGNESIUM [Suspect]
     Dosage: 7 CAPSULES/BOX
     Route: 048
  3. OMEPRAZOLE MAGNESIUM [Suspect]
     Indication: GASTRIC ULCER
     Dosage: 7 CAPSULES/BOX; 20 MG DAILY
     Route: 048
     Dates: start: 20120501

REACTIONS (4)
  - HAEMATEMESIS [None]
  - DYSPEPSIA [None]
  - ABDOMINAL PAIN UPPER [None]
  - DECREASED APPETITE [None]
